FAERS Safety Report 8352977-X (Version None)
Quarter: 2012Q2

REPORT INFORMATION
  Report Type: 
  Country: None (occurrence: None)
  Receive Date: 20120511
  Receipt Date: 20120208
  Transmission Date: 20120825
  Serious: No
  Sender: FDA-Public Use
  Company Number: US-GLAXOSMITHKLINE-A0965176A

PATIENT
  Sex: Female

DRUGS (3)
  1. BYSTOLIC [Concomitant]
  2. LEVOXYL [Concomitant]
  3. DYNACIRC CR [Suspect]
     Indication: ILL-DEFINED DISORDER
     Dosage: 10MG PER DAY
     Route: 048

REACTIONS (2)
  - DIZZINESS [None]
  - WEIGHT INCREASED [None]
